FAERS Safety Report 10917355 (Version 2)
Quarter: 2015Q2

REPORT INFORMATION
  Report Type: Spontaneous
  Country: PL (occurrence: PL)
  Receive Date: 20150316
  Receipt Date: 20150413
  Transmission Date: 20150821
  Serious: Yes (Death, Life-Threatening, Hospitalization)
  Sender: FDA-Public Use
  Company Number: PL-NAPPMUNDI-DEU-2015-0016448

PATIENT
  Age: 67 Year
  Sex: Female

DRUGS (3)
  1. TARGIN [Suspect]
     Active Substance: NALOXONE HYDROCHLORIDE\OXYCODONE HYDROCHLORIDE
     Indication: CANCER PAIN
     Dosage: 20/10 MG, DAILY
     Route: 048
  2. IBUPROFENUM [Concomitant]
     Dosage: 200 MG, DAILY
     Route: 048
  3. EUTHYROX [Concomitant]
     Active Substance: LEVOTHYROXINE SODIUM
     Dosage: 75 MCG, DAILY
     Route: 048

REACTIONS (1)
  - Toxic epidermal necrolysis [Fatal]

NARRATIVE: CASE EVENT DATE: 20150301
